FAERS Safety Report 7995612-2 (Version None)
Quarter: 2011Q4

REPORT INFORMATION
  Report Type: 
  Country: None (occurrence: None)
  Receive Date: 20111220
  Receipt Date: 20111216
  Transmission Date: 20120403
  Serious: Yes (Other)
  Sender: FDA-Public Use
  Company Number: US-SHIRE-ALL1-2011-04193

PATIENT
  Sex: Female
  Weight: 47.256 kg

DRUGS (2)
  1. VPRIV [Suspect]
     Indication: GAUCHER'S DISEASE
     Dosage: 2800 IU, UNKNOWN
     Route: 041
     Dates: start: 20100707
  2. KLONOPIN [Concomitant]
     Indication: INSOMNIA
     Dosage: 1.5 MG, AS REQ'D
     Route: 048

REACTIONS (4)
  - URTICARIA [None]
  - PRURITUS [None]
  - THROAT TIGHTNESS [None]
  - INFUSION RELATED REACTION [None]
